FAERS Safety Report 6684190-6 (Version None)
Quarter: 2010Q2

REPORT INFORMATION
  Report Type: 
  Country: None (occurrence: None)
  Receive Date: 20100416
  Receipt Date: 20100407
  Transmission Date: 20101027
  Serious: Yes (Death, Life-Threatening, Hospitalization)
  Sender: FDA-Public Use
  Company Number: JP-JNJFOC-20080100962

PATIENT
  Sex: Female
  Weight: 52 kg

DRUGS (8)
  1. GOLIMUMAB [Suspect]
     Indication: RHEUMATOID ARTHRITIS
     Route: 058
  2. GOLIMUMAB [Suspect]
     Route: 058
  3. GOLIMUMAB [Suspect]
     Route: 058
  4. GOLIMUMAB [Suspect]
     Route: 058
  5. GOLIMUMAB [Suspect]
     Route: 058
  6. ARAVA [Concomitant]
     Indication: RHEUMATOID ARTHRITIS
     Route: 048
  7. VOLTAREN [Concomitant]
     Indication: RHEUMATOID ARTHRITIS
     Route: 054
  8. CRAVIT [Concomitant]
     Indication: PYELONEPHRITIS
     Route: 048

REACTIONS (35)
  - ACUTE SINUSITIS [None]
  - BLOOD GLUCOSE INCREASED [None]
  - BLOOD PRESSURE DECREASED [None]
  - BLOOD SODIUM INCREASED [None]
  - BRADYCARDIA [None]
  - BRAIN OEDEMA [None]
  - BRAIN STEM SYNDROME [None]
  - CANDIDIASIS [None]
  - CARDIAC ARREST [None]
  - CARDIOVASCULAR DISORDER [None]
  - CEREBRAL INFARCTION [None]
  - CEREBROSPINAL FLUID RETENTION [None]
  - CULTURE POSITIVE [None]
  - DEPRESSED LEVEL OF CONSCIOUSNESS [None]
  - DIABETES INSIPIDUS [None]
  - DYSKINESIA [None]
  - EXTENSOR PLANTAR RESPONSE [None]
  - HAEMATOCHEZIA [None]
  - HEART RATE DECREASED [None]
  - HEMIPLEGIA [None]
  - HYPOALBUMINAEMIA [None]
  - MENINGITIS [None]
  - MENINGITIS BACTERIAL [None]
  - MUSCLE SPASTICITY [None]
  - MYDRIASIS [None]
  - OEDEMA PERIPHERAL [None]
  - POSTURING [None]
  - PYELONEPHRITIS [None]
  - RESPIRATORY ARREST [None]
  - STAPHYLOCOCCAL INFECTION [None]
  - STREPTOCOCCAL INFECTION [None]
  - SUPRAVENTRICULAR TACHYCARDIA [None]
  - TACHYPNOEA [None]
  - TONIC CONVULSION [None]
  - UNRESPONSIVE TO STIMULI [None]
